FAERS Safety Report 4281215-2 (Version None)
Quarter: 2004Q1

REPORT INFORMATION
  Report Type: 
  Country: None (occurrence: None)
  Receive Date: 20040127
  Receipt Date: 20040114
  Transmission Date: 20041129
  Serious: Yes (Hospitalization)
  Sender: FDA-Public Use
  Company Number: US-JNJFOC-20040103063

PATIENT
  Age: 58 Year
  Sex: Male
  Weight: 79.3795 kg

DRUGS (4)
  1. INFLIXIAMB (INFLIXIMAB, RECOMBINANT) LYOPHILIZED POWDER [Suspect]
     Indication: CROHN'S DISEASE
     Dosage: 5 MG/KG, INTRAVENOUS
     Route: 042
     Dates: start: 20030615
  2. MERCAPTOPURINE [Concomitant]
  3. BUDESONIDE (BUDESONIDE) [Concomitant]
  4. PREDNISONE [Concomitant]

REACTIONS (4)
  - COLONIC FISTULA [None]
  - CONDITION AGGRAVATED [None]
  - CROHN'S DISEASE [None]
  - VOMITING [None]
